FAERS Safety Report 6831787-6 (Version None)
Quarter: 2010Q3

REPORT INFORMATION
  Report Type: 
  Country: None (occurrence: None)
  Receive Date: 20100712
  Receipt Date: 20100528
  Transmission Date: 20110219
  Serious: Yes (Death, Other)
  Sender: FDA-Public Use
  Company Number: US-BAXTER-2008BH013041

PATIENT
  Age: 42 Year
  Sex: Male
  Weight: 52 kg

DRUGS (42)
  1. HEPARIN SODIUM [Suspect]
     Indication: HAEMODIALYSIS
     Route: 010
     Dates: start: 20080116
  2. HEPARIN SODIUM [Suspect]
     Route: 010
     Dates: start: 20080116
  3. HEPARIN SODIUM [Suspect]
     Route: 010
     Dates: start: 20071205
  4. HEPARIN SODIUM [Suspect]
     Route: 010
     Dates: start: 20080118
  5. HEPARIN SODIUM [Suspect]
     Route: 010
     Dates: start: 20071205
  6. HEPARIN SODIUM [Suspect]
     Route: 010
     Dates: start: 20080118
  7. HEPARIN SODIUM [Suspect]
     Route: 010
     Dates: start: 20071207
  8. HEPARIN SODIUM [Suspect]
     Route: 010
     Dates: start: 20080122
  9. HEPARIN SODIUM [Suspect]
     Route: 010
     Dates: start: 20071207
  10. HEPARIN SODIUM [Suspect]
     Route: 010
     Dates: start: 20071210
  11. HEPARIN SODIUM [Suspect]
     Route: 010
     Dates: start: 20071210
  12. HEPARIN SODIUM [Suspect]
     Route: 010
     Dates: start: 20080107
  13. HEPARIN SODIUM [Suspect]
     Route: 010
     Dates: start: 20080107
  14. HEPARIN SODIUM [Suspect]
     Route: 010
     Dates: start: 20080109
  15. HEPARIN SODIUM [Suspect]
     Route: 010
     Dates: start: 20080109
  16. HEPARIN SODIUM [Suspect]
     Route: 010
     Dates: start: 20080111
  17. HEPARIN SODIUM [Suspect]
     Route: 010
     Dates: start: 20080111
  18. HEPARIN SODIUM [Suspect]
     Route: 010
     Dates: start: 20080114
  19. HEPARIN SODIUM [Suspect]
     Route: 010
     Dates: start: 20080114
  20. PHOSLO [Concomitant]
     Indication: PRODUCT USED FOR UNKNOWN INDICATION
     Route: 065
  21. VIOKASE [Concomitant]
     Indication: PRODUCT USED FOR UNKNOWN INDICATION
     Route: 048
  22. DILTIAZEM [Concomitant]
     Indication: CARDIAC DISORDER
     Route: 048
  23. PREVACID [Concomitant]
     Indication: PRODUCT USED FOR UNKNOWN INDICATION
     Route: 065
  24. LOTREL [Concomitant]
     Indication: BLOOD PRESSURE
     Route: 048
  25. RENA-VITE [Concomitant]
     Indication: PRODUCT USED FOR UNKNOWN INDICATION
     Route: 065
  26. FUROSEMIDE [Concomitant]
     Indication: PRODUCT USED FOR UNKNOWN INDICATION
     Route: 048
  27. TOPROL-XL [Concomitant]
     Indication: BLOOD PRESSURE
     Route: 048
  28. XANAX [Concomitant]
     Indication: PRODUCT USED FOR UNKNOWN INDICATION
     Route: 065
  29. DIPHENOXYLATE HCL AND ATROPINE SULFATE [Concomitant]
     Indication: PRODUCT USED FOR UNKNOWN INDICATION
     Route: 048
  30. HUMULIN 70/30 [Concomitant]
     Indication: PRODUCT USED FOR UNKNOWN INDICATION
     Route: 065
  31. ANTIBIOTICS [Concomitant]
     Indication: PRODUCT USED FOR UNKNOWN INDICATION
     Route: 065
  32. IRON [Concomitant]
     Indication: PRODUCT USED FOR UNKNOWN INDICATION
     Route: 065
  33. PANTOPRAZOLE [Concomitant]
     Indication: PRODUCT USED FOR UNKNOWN INDICATION
     Route: 048
  34. FIBERCON [Concomitant]
     Indication: PRODUCT USED FOR UNKNOWN INDICATION
     Route: 048
  35. GLYBURIDE [Concomitant]
     Indication: DIABETES MELLITUS
     Route: 048
  36. CALCIUM ANTACID [Concomitant]
     Indication: BLOOD CALCIUM
     Route: 048
  37. METRONIDAZOLE [Concomitant]
     Indication: PRODUCT USED FOR UNKNOWN INDICATION
     Route: 048
  38. CHOLESTYRAMINE [Concomitant]
     Indication: PRODUCT USED FOR UNKNOWN INDICATION
     Route: 048
  39. LORAZEPAM [Concomitant]
     Indication: ANXIETY
     Route: 048
  40. TYLENOL (CAPLET) [Concomitant]
     Indication: PAIN
     Route: 048
  41. BACITRACIN [Concomitant]
     Indication: PRODUCT USED FOR UNKNOWN INDICATION
     Route: 061
  42. SODIUM CHLORIDE [Concomitant]
     Indication: PRODUCT USED FOR UNKNOWN INDICATION
     Route: 042

REACTIONS (23)
  - ABDOMINAL PAIN [None]
  - ASTHENIA [None]
  - BURNING SENSATION [None]
  - CLOSTRIDIUM TEST POSITIVE [None]
  - DEATH [None]
  - DEHYDRATION [None]
  - DYSPEPSIA [None]
  - FACIAL PAIN [None]
  - FAECAL INCONTINENCE [None]
  - FEELING HOT [None]
  - FLUSHING [None]
  - GLOSSODYNIA [None]
  - HYPERHIDROSIS [None]
  - HYPERKALAEMIA [None]
  - HYPOTENSION [None]
  - LARGE INTESTINE PERFORATION [None]
  - LIP PAIN [None]
  - MALAISE [None]
  - NAUSEA [None]
  - ORAL PAIN [None]
  - PARAESTHESIA ORAL [None]
  - SEPTIC SHOCK [None]
  - VOMITING [None]
